FAERS Safety Report 18758197 (Version 1)
Quarter: 2021Q1

REPORT INFORMATION
  Report Type: Spontaneous
  Country: US (occurrence: US)
  Receive Date: 20210119
  Receipt Date: 20210119
  Transmission Date: 20210419
  Serious: No
  Sender: FDA-Public Use
  Company Number: US-009507513-2101USA001702

PATIENT
  Age: 13 Year
  Sex: Female

DRUGS (1)
  1. NEXPLANON [Suspect]
     Active Substance: ETONOGESTREL
     Indication: CONTRACEPTION
     Dosage: 1 DOSAGE FORM (IMPLANT), DOSE REPORTED AS 68 MILLIGRAM, FREQUENCY: EVERY THREE YEARS (Q 3 YEARS)
     Route: 059

REACTIONS (1)
  - Complication of device insertion [Unknown]

NARRATIVE: CASE EVENT DATE: 20190919
